FAERS Safety Report 12653043 (Version 1)
Quarter: 2016Q3

REPORT INFORMATION
  Report Type: Spontaneous
  Country: TW (occurrence: TW)
  Receive Date: 20160815
  Receipt Date: 20160815
  Transmission Date: 20161109
  Serious: Yes (Other)
  Sender: FDA-Public Use
  Company Number: PHHY2016TW108574

PATIENT
  Age: 36 Year
  Sex: Female
  Weight: 72.2 kg

DRUGS (7)
  1. IPRATROPIUM [Suspect]
     Active Substance: IPRATROPIUM
     Indication: ASTHMA
     Route: 055
  2. PROPOFOL. [Suspect]
     Active Substance: PROPOFOL
     Indication: SEDATIVE THERAPY
     Route: 065
  3. MAGNESIUM SULFATE. [Suspect]
     Active Substance: MAGNESIUM SULFATE
     Indication: PRODUCT USED FOR UNKNOWN INDICATION
     Route: 042
  4. SALINE [Suspect]
     Active Substance: SODIUM CHLORIDE
     Indication: VOMITING
     Dosage: 100 ML, QH
     Route: 065
  5. BETAMETHASONE. [Suspect]
     Active Substance: BETAMETHASONE
     Indication: PROPHYLAXIS
     Dosage: 12 MG, QD
     Route: 065
  6. BUDESONIDE. [Suspect]
     Active Substance: BUDESONIDE
     Indication: ASTHMA
     Dosage: 1 MG, BID
     Route: 055
  7. DEXTROSE. [Suspect]
     Active Substance: DEXTROSE
     Indication: KETOACIDOSIS
     Dosage: 125 ML, QH
     Route: 065

REACTIONS (3)
  - Dyspnoea [Unknown]
  - Therapeutic response decreased [Unknown]
  - Maternal exposure during pregnancy [Unknown]
